FAERS Safety Report 5429432-X (Version None)
Quarter: 2007Q3

REPORT INFORMATION
  Report Type: 
  Country: None (occurrence: None)
  Receive Date: 20070731
  Receipt Date: 20070426
  Transmission Date: 20080115
  Serious: No
  Sender: FDA-Public Use
  Company Number: US200704006008

PATIENT
  Age: 37 Year
  Sex: Female
  Weight: 165 kg

DRUGS (4)
  1. BYETTA [Suspect]
     Indication: TYPE 2 DIABETES MELLITUS
     Dosage: 5 UG, 2/D, SUBCUTANEOUS
     Route: 058
     Dates: start: 20070301
  2. EXENATIDE 5MCG PEN, DISPOSABLE DEVICE (EXENATID PEN (5MCG)) PEN, DISPO [Concomitant]
  3. ACTOS [Concomitant]
  4. THYROID TAB [Concomitant]

REACTIONS (3)
  - DYSPNOEA [None]
  - MUSCULOSKELETAL DISCOMFORT [None]
  - THROAT TIGHTNESS [None]
